FAERS Safety Report 5782042-7 (Version None)
Quarter: 2008Q2

REPORT INFORMATION
  Report Type: 
  Country: None (occurrence: None)
  Receive Date: 20080623
  Receipt Date: 20080612
  Transmission Date: 20081010
  Serious: Yes (Death)
  Sender: FDA-Public Use
  Company Number: JP-MERCK-0805USA03542

PATIENT
  Age: 30 Year
  Sex: Male

DRUGS (11)
  1. PRIMAXIN [Suspect]
     Route: 042
     Dates: start: 20020402, end: 20020404
  2. CALONAL [Suspect]
     Route: 048
     Dates: start: 20020319, end: 20020320
  3. PL-GRANULES [Suspect]
     Route: 048
     Dates: start: 20020319, end: 20020319
  4. ZITHROMAX [Suspect]
     Route: 048
     Dates: start: 20020319, end: 20020319
  5. VOLTAREN [Suspect]
     Route: 054
     Dates: start: 20020319, end: 20020319
  6. VOLTAREN [Suspect]
     Route: 054
     Dates: start: 20020401, end: 20020404
  7. ZANTAC [Suspect]
     Route: 042
     Dates: start: 20020323, end: 20020326
  8. MAXIPIME [Suspect]
     Route: 042
     Dates: start: 20020330, end: 20020402
  9. MODACIN [Suspect]
     Route: 042
     Dates: start: 20020322, end: 20020328
  10. REUSAL [Suspect]
     Route: 042
     Dates: start: 20020321, end: 20020404
  11. MENAMIN [Suspect]
     Route: 030
     Dates: start: 20020321, end: 20020404

REACTIONS (2)
  - PANCYTOPENIA [None]
  - SEPSIS [None]
